FAERS Safety Report 4434143-3 (Version None)
Quarter: 2004Q3

REPORT INFORMATION
  Report Type: 
  Country: None (occurrence: None)
  Receive Date: 20040826
  Receipt Date: 20040816
  Transmission Date: 20050211
  Serious: Yes (Other)
  Sender: FDA-Public Use
  Company Number: PHFR2004GB03207

PATIENT
  Sex: Male

DRUGS (2)
  1. VOLTAREN [Suspect]
     Route: 054
     Dates: end: 20040601
  2. CIPROFLOXACIN [Suspect]
     Route: 048
     Dates: end: 20040601

REACTIONS (4)
  - DEPRESSION [None]
  - MUSCLE CRAMP [None]
  - PARAESTHESIA [None]
  - TINNITUS [None]
